FAERS Safety Report 21697618 (Version 3)
Quarter: 2022Q4

REPORT INFORMATION
  Report Type: Spontaneous
  Country: JP (occurrence: JP)
  Receive Date: 20221208
  Receipt Date: 20221228
  Transmission Date: 20230113
  Serious: Yes (Other)
  Sender: FDA-Public Use
  Company Number: JP-002147023-NVSJ2022JP275372

PATIENT
  Age: 43 Year
  Sex: Male
  Weight: 86 kg

DRUGS (1)
  1. COSENTYX [Suspect]
     Active Substance: SECUKINUMAB
     Indication: Psoriatic arthropathy
     Dosage: 300 MG
     Route: 058

REACTIONS (3)
  - Non-alcoholic steatohepatitis [Unknown]
  - Rash [Recovered/Resolved]
  - Arthritis [Unknown]
